FAERS Safety Report 25093403 (Version 2)
Quarter: 2025Q1

REPORT INFORMATION
  Report Type: Spontaneous
  Country: US (occurrence: US)
  Receive Date: 20250319
  Receipt Date: 20250329
  Transmission Date: 20250408
  Serious: Yes (Other)
  Sender: AUROBINDO
  Company Number: US-MLMSERVICE-20250303-PI435041-00232-1

PATIENT
  Age: 68 Year
  Sex: Male

DRUGS (12)
  1. MYCOPHENOLIC ACID [Suspect]
     Active Substance: MYCOPHENOLIC ACID
     Indication: Prophylaxis
     Dosage: 1 GRAM, TWO TIMES A DAY (PREOPERATIVE)
     Route: 048
  2. MYCOPHENOLIC ACID [Suspect]
     Active Substance: MYCOPHENOLIC ACID
     Indication: Corneal graft failure
  3. METHOTREXATE [Suspect]
     Active Substance: METHOTREXATE
     Indication: Rheumatoid arthritis
     Route: 065
  4. PREDNISOLONE [Suspect]
     Active Substance: PREDNISOLONE
     Indication: Corneal oedema
     Dosage: UNK UNK, FOUR TIMES/DAY
     Route: 061
  5. PREDNISOLONE [Suspect]
     Active Substance: PREDNISOLONE
     Route: 048
  6. BRIMONIDINE [Suspect]
     Active Substance: BRIMONIDINE TARTRATE
     Indication: Glaucoma
     Route: 061
  7. BRIMONIDINE [Suspect]
     Active Substance: BRIMONIDINE TARTRATE
     Indication: Uveitic glaucoma
  8. TIMOLOL [Suspect]
     Active Substance: TIMOLOL
     Indication: Glaucoma
     Route: 061
  9. SODIUM CHLORIDE [Suspect]
     Active Substance: SODIUM CHLORIDE
     Indication: Corneal oedema
     Route: 061
  10. VANCOMYCIN [Concomitant]
     Active Substance: VANCOMYCIN
     Indication: Product used for unknown indication
     Route: 065
  11. TOBRAMYCIN [Concomitant]
     Active Substance: TOBRAMYCIN
     Indication: Product used for unknown indication
     Route: 065
  12. MOXIFLOXACIN [Concomitant]
     Active Substance: MOXIFLOXACIN
     Indication: Product used for unknown indication
     Dosage: UNK, FOUR TIMES/DAY
     Route: 065

REACTIONS (3)
  - Streptococcal infection [Recovering/Resolving]
  - Infectious crystalline keratopathy [Recovered/Resolved]
  - Drug ineffective [Unknown]
